FAERS Safety Report 8188955-3 (Version None)
Quarter: 2012Q1

REPORT INFORMATION
  Report Type: 
  Country: None (occurrence: None)
  Receive Date: 20120306
  Receipt Date: 20120301
  Transmission Date: 20120608
  Serious: Yes (Death, Hospitalization)
  Sender: FDA-Public Use
  Company Number: ZA-BRISTOL-MYERS SQUIBB COMPANY-16344608

PATIENT
  Age: 62 Year
  Sex: Male

DRUGS (7)
  1. METFORMIN HCL [Suspect]
     Indication: TYPE 2 DIABETES MELLITUS
  2. ACTRAPHANE [Suspect]
     Indication: TYPE 2 DIABETES MELLITUS
     Dosage: UNK-07DEC10,92IU 08DEC10-14JUN11,82IU 15JUN11-UNK,92IU/U
  3. PLACEBO [Suspect]
     Indication: TYPE 2 DIABETES MELLITUS
     Dates: start: 20101207, end: 20111218
  4. BLINDED: SAXAGLIPTIN [Suspect]
     Indication: TYPE 2 DIABETES MELLITUS
     Dates: start: 20101207, end: 20111218
  5. ATIVAN [Concomitant]
     Dates: start: 20111218, end: 20111218
  6. ASPIRIN [Concomitant]
     Dosage: 1DF:{100MG
  7. MAXOLON [Concomitant]
     Dates: start: 20111218, end: 20111218

REACTIONS (2)
  - PNEUMOCYSTIS JIROVECI PNEUMONIA [None]
  - HIV INFECTION [None]
